FAERS Safety Report 24748562 (Version 1)
Quarter: 2024Q4

REPORT INFORMATION
  Report Type: Other
  Country: IT (occurrence: IT)
  Receive Date: 20241218
  Receipt Date: 20241218
  Transmission Date: 20250114
  Serious: Yes (Other)
  Sender: APPCO PHARMA LLC
  Company Number: IT-Appco Pharma LLC-2167361

PATIENT
  Age: 51 Year
  Sex: Female

DRUGS (1)
  1. METRONIDAZOLE [Suspect]
     Active Substance: METRONIDAZOLE
     Indication: Colitis ulcerative

REACTIONS (1)
  - Linear IgA disease [Recovered/Resolved]
